FAERS Safety Report 21009922 (Version 1)
Quarter: 2022Q2

REPORT INFORMATION
  Report Type: Spontaneous
  Country: US (occurrence: US)
  Receive Date: 20220627
  Receipt Date: 20220627
  Transmission Date: 20220721
  Serious: Yes (Other)
  Sender: FDA-Public Use
  Company Number: US-PFIZER INC-PV202200000016

PATIENT
  Age: 63 Year
  Sex: Female

DRUGS (3)
  1. MITOXANTRONE HYDROCHLORIDE [Suspect]
     Active Substance: MITOXANTRONE HYDROCHLORIDE
     Indication: Breast cancer
     Dosage: 4 MG/M2, DAILY X 5 , 7 COURCES
  2. DOXORUBICIN HYDROCHLORIDE [Suspect]
     Active Substance: DOXORUBICIN HYDROCHLORIDE
     Indication: Breast cancer
     Dosage: 450 MG/M2
  3. DOXORUBICIN HYDROCHLORIDE [Suspect]
     Active Substance: DOXORUBICIN HYDROCHLORIDE
     Indication: Neoplasm malignant

REACTIONS (7)
  - Cardiotoxicity [Recovering/Resolving]
  - Cardiac failure congestive [Recovering/Resolving]
  - Cardiomegaly [Recovering/Resolving]
  - Dyspnoea [Recovering/Resolving]
  - Oedema peripheral [Recovering/Resolving]
  - Tachycardia [Recovering/Resolving]
  - Rales [Recovering/Resolving]
